FAERS Safety Report 5304171-4 (Version None)
Quarter: 2007Q2

REPORT INFORMATION
  Report Type: 
  Country: None (occurrence: None)
  Receive Date: 20070423
  Receipt Date: 20070410
  Transmission Date: 20071010
  Serious: Yes (Other)
  Sender: FDA-Public Use
  Company Number: PHEH2007US04721

PATIENT
  Age: 75 Year
  Sex: Female

DRUGS (13)
  1. ZELNORM [Suspect]
     Indication: IRRITABLE BOWEL SYNDROME
     Dosage: 6MG
     Dates: start: 20050101, end: 20070402
  2. COUMADIN [Concomitant]
  3. SYNTHROID [Concomitant]
  4. PREVACID [Concomitant]
  5. SINGULAIR [Concomitant]
  6. COREG [Concomitant]
  7. AMIODARONE HCL [Concomitant]
  8. SPIRONOLACTONE [Concomitant]
  9. LANOXIN [Concomitant]
  10. VITAMIN B-12 [Concomitant]
  11. CALCIUM [Concomitant]
  12. FUROSEMIDE [Concomitant]
  13. KLOR-CON [Concomitant]

REACTIONS (2)
  - CARDIAC DISORDER [None]
  - FATIGUE [None]
